FAERS Safety Report 8500059-6 (Version None)
Quarter: 2012Q3

REPORT INFORMATION
  Report Type: 
  Country: None (occurrence: None)
  Receive Date: 20120710
  Receipt Date: 20120706
  Transmission Date: 20120928
  Serious: Yes (Hospitalization)
  Sender: FDA-Public Use
  Company Number: US-BAYER-2012-068122

PATIENT
  Age: 46 Year
  Sex: Female

DRUGS (7)
  1. LEVOTHYROXINE SODIUM [Concomitant]
     Dosage: 0.2 MG DAILY
     Route: 048
     Dates: start: 20110715
  2. AZITHROMYCIN [Concomitant]
     Dosage: 250 MG 2 TABLETS ON DAY 1 THEN 1 TABLET DAILY FOR 4 DAYS
     Route: 048
     Dates: start: 20111018
  3. ALPRAZOLAM [Concomitant]
     Dosage: 0.5 MG 1 THREE TIMES A DAY IF NEEDED
     Route: 048
     Dates: start: 20110705, end: 20110930
  4. DROSPIRENONE AND ETHINYL ESTRADIOL [Suspect]
  5. HYDROCODONE BITARTRATE AND ACETAMINOPHEN [Concomitant]
     Indication: PAIN
     Dosage: 10/500 MG, 1 TABLET EVERY 4-6 HOURS IF NEEDED
     Route: 048
     Dates: start: 20110715, end: 20111005
  6. IRON [Concomitant]
     Dosage: THREE TIMES A DAY
     Route: 048
     Dates: start: 20111020
  7. SYNTHROID [Concomitant]
     Dosage: UNK
     Route: 048
     Dates: start: 20111020

REACTIONS (2)
  - DEEP VEIN THROMBOSIS [None]
  - PULMONARY EMBOLISM [None]
